FAERS Safety Report 16074111 (Version 1)
Quarter: 2019Q1

REPORT INFORMATION
  Report Type: Report from Study
  Country: ES (occurrence: ES)
  Receive Date: 20190314
  Receipt Date: 20190314
  Transmission Date: 20190418
  Serious: Yes (Other)
  Sender: FDA-Public Use
  Company Number: ES-SA-2019SA063141

PATIENT
  Sex: Male
  Weight: 108.7 kg

DRUGS (4)
  1. FIASP [Concomitant]
     Active Substance: INSULIN ASPART
     Dosage: AS PER REGIMEN
     Route: 058
  2. INSULIN GLARGINE [Suspect]
     Active Substance: INSULIN GLARGINE
     Indication: TYPE 2 DIABETES MELLITUS
     Dosage: 30 IU, QD
     Route: 058
  3. BYDUREON [Concomitant]
     Active Substance: EXENATIDE
     Dosage: AS PER REGIMEN
     Route: 058
  4. XIGDUO XR [Concomitant]
     Active Substance: DAPAGLIFLOZIN PROPANEDIOL\METFORMIN HYDROCHLORIDE
     Dosage: 1 DF, BID
     Route: 048

REACTIONS (1)
  - Diabetic metabolic decompensation [Unknown]
